FAERS Safety Report 16051171 (Version 3)
Quarter: 2020Q4

REPORT INFORMATION
  Report Type: Spontaneous
  Country: US (occurrence: US)
  Receive Date: 20190308
  Receipt Date: 20201223
  Transmission Date: 20210113
  Serious: No
  Sender: FDA-Public Use
  Company Number: US-PFIZER INC-2019099420

PATIENT
  Age: 62 Year
  Sex: Female

DRUGS (4)
  1. METFORMIN [Concomitant]
     Active Substance: METFORMIN HYDROCHLORIDE
     Indication: DIABETES MELLITUS
     Dosage: UNK
  2. SOMAVERT [Suspect]
     Active Substance: PEGVISOMANT
     Dosage: 30 MG, 8 TIMES A WEEK
     Route: 058
  3. SOMAVERT [Suspect]
     Active Substance: PEGVISOMANT
     Indication: ACROMEGALY
     Dosage: 30 MG, 9 TIMES A WEEK
     Route: 058
     Dates: start: 20090101
  4. INSULIN [Concomitant]
     Active Substance: INSULIN NOS
     Indication: DIABETES MELLITUS
     Dosage: UNK

REACTIONS (17)
  - Fatigue [Not Recovered/Not Resolved]
  - Hand deformity [Unknown]
  - Hypoglycaemia [Unknown]
  - Arthralgia [Unknown]
  - Hypertension [Unknown]
  - Prescribed overdose [Unknown]
  - Dysphonia [Unknown]
  - Product dose omission issue [Unknown]
  - Craniofacial deformity [Not Recovered/Not Resolved]
  - Speech disorder [Unknown]
  - Influenza [Unknown]
  - Nausea [Unknown]
  - Diarrhoea [Unknown]
  - Gingival swelling [Unknown]
  - Mouth swelling [Unknown]
  - Nasopharyngitis [Unknown]
  - Peripheral swelling [Unknown]

NARRATIVE: CASE EVENT DATE: 20090101
